FAERS Safety Report 5274236-4 (Version None)
Quarter: 2007Q1

REPORT INFORMATION
  Report Type: 
  Country: None (occurrence: None)
  Receive Date: 20070323
  Receipt Date: 20070316
  Transmission Date: 20070707
  Serious: Yes (Death)
  Sender: FDA-Public Use
  Company Number: AU-JNJFOC-20070303894

PATIENT
  Age: 39 Year
  Sex: Male

DRUGS (4)
  1. HALOPERIDOL [Suspect]
     Indication: BIPOLAR DISORDER
  2. AMITRIPTYLINE HCL [Suspect]
     Indication: DRUG USE FOR UNKNOWN INDICATION
  3. LITHIUM CARBONATE [Concomitant]
  4. VALPROATE SODIUM [Concomitant]

REACTIONS (3)
  - BRUGADA SYNDROME [None]
  - ELECTROCARDIOGRAM QT PROLONGED [None]
  - SUDDEN DEATH [None]
